FAERS Safety Report 7062287-9 (Version None)
Quarter: 2010Q4

REPORT INFORMATION
  Report Type: 
  Country: None (occurrence: None)
  Receive Date: 20101026
  Receipt Date: 20101006
  Transmission Date: 20110411
  Serious: Yes (Other)
  Sender: FDA-Public Use
  Company Number: CHPA2010JP16032

PATIENT

DRUGS (1)
  1. GLYSENNID [Suspect]
     Dosage: UNK, UNK
     Route: 048

REACTIONS (2)
  - URETERAL CATHETERISATION [None]
  - URETERIC HAEMORRHAGE [None]
